FAERS Safety Report 16095775 (Version 1)
Quarter: 2019Q1

REPORT INFORMATION
  Report Type: Report from Study
  Country: AU (occurrence: AU)
  Receive Date: 20190320
  Receipt Date: 20190320
  Transmission Date: 20190418
  Serious: Yes (Hospitalization)
  Sender: FDA-Public Use
  Company Number: AU-JNJFOC-20190316369

PATIENT
  Sex: Female

DRUGS (1)
  1. REMICADE [Suspect]
     Active Substance: INFLIXIMAB
     Indication: CROHN^S DISEASE
     Route: 042
     Dates: end: 20190118

REACTIONS (5)
  - Nausea [Unknown]
  - SLE arthritis [Unknown]
  - Drug ineffective [Unknown]
  - Obstruction [Unknown]
  - Diarrhoea [Unknown]
